FAERS Safety Report 13181058 (Version 1)
Quarter: 2017Q1

REPORT INFORMATION
  Report Type: Spontaneous
  Country: US (occurrence: US)
  Receive Date: 20170202
  Receipt Date: 20170202
  Transmission Date: 20170428
  Serious: No
  Sender: FDA-Public Use
  Company Number: US-SMITH AND NEPHEW, INC-2016SMT00135

PATIENT
  Age: 68 Year
  Sex: Male
  Weight: 108.84 kg

DRUGS (5)
  1. CATAPRES [Concomitant]
     Active Substance: CLONIDINE HYDROCHLORIDE
     Dosage: UNK
  2. REGRANEX [Suspect]
     Active Substance: BECAPLERMIN
     Indication: BLISTER
     Dosage: UNK
     Route: 061
     Dates: start: 20160203
  3. METOPROLOL. [Concomitant]
     Active Substance: METOPROLOL
     Dosage: UNK
  4. MANY OTHER UNSPECIFIED CONCOMITANT MEDICATIONS [Concomitant]
     Dosage: UNK
  5. INSULIN [Concomitant]
     Active Substance: INSULIN NOS
     Dosage: UNK

REACTIONS (2)
  - Hyperkeratosis [Recovered/Resolved]
  - Application site discharge [Recovered/Resolved]

NARRATIVE: CASE EVENT DATE: 201602
